FAERS Safety Report 17706369 (Version 1)
Quarter: 2020Q2

REPORT INFORMATION
  Report Type: Spontaneous
  Country: SG (occurrence: SG)
  Receive Date: 20200424
  Receipt Date: 20200424
  Transmission Date: 20200714
  Serious: Yes (Hospitalization)
  Sender: FDA-Public Use
  Company Number: SG-JUBILANT PHARMA LTD-2020SG000260

PATIENT
  Age: 35 Year
  Sex: Male

DRUGS (1)
  1. SODIUM IODIDE I-131. [Suspect]
     Active Substance: SODIUM IODIDE I-131
     Indication: BASEDOW^S DISEASE
     Dosage: 20 MCI, SINGLE DOSE
     Dates: start: 2018, end: 2018

REACTIONS (6)
  - Myocarditis [Recovered/Resolved]
  - Radiation thyroiditis [Recovered/Resolved]
  - Tachycardia [Recovered/Resolved]
  - Pyrexia [Recovered/Resolved]
  - Chest pain [Recovered/Resolved]
  - Post procedural hypothyroidism [Not Recovered/Not Resolved]
